FAERS Safety Report 8707656 (Version 3)
Quarter: 2012Q4

REPORT INFORMATION
  Report Type: 
  Country: AU (occurrence: AU)
  Receive Date: 20120806
  Receipt Date: 20121114
  Transmission Date: 20130627
  Serious: Yes (Other)
  Sender: FDA-Public Use
  Company Number: AU-AMGEN-AUSSP2012046715

PATIENT
  Age: 40 Year
  Sex: Male

DRUGS (3)
  1. ENBREL [Suspect]
     Indication: ANKYLOSING SPONDYLITIS
     Dosage: 50 mg, weekly
     Route: 058
     Dates: start: 200505
  2. ENBREL [Suspect]
     Indication: ARTHRITIS REACTIVE
     Dosage: UNK
  3. MELOXICAM [Concomitant]
     Indication: ANKYLOSING SPONDYLITIS
     Dosage: 15 mg, 1x/day
     Route: 048

REACTIONS (3)
  - Henoch-Schonlein purpura [Recovered/Resolved]
  - Vasculitic rash [Recovered/Resolved]
  - Leukocytoclastic vasculitis [Recovered/Resolved]
